FAERS Safety Report 8785584 (Version 1)
Quarter: 2012Q4

REPORT INFORMATION
  Report Type: 
  Country: DE (occurrence: DE)
  Receive Date: 20120914
  Receipt Date: 20120914
  Transmission Date: 20130627
  Serious: Yes (Congenital Anomaly, Other)
  Sender: FDA-Public Use
  Company Number: DE-UCBSA-065423

PATIENT
  Age: 0 None
  Sex: Female
  Weight: 2.95 kg

DRUGS (15)
  1. VIMPAT [Suspect]
     Indication: EPILEPSY
     Dosage: TOTAL DAILY DOSE: 250MG
     Route: 064
     Dates: start: 201103, end: 2011
  2. VIMPAT [Suspect]
     Indication: EPILEPSY
     Dosage: TOTAL DAILY DOSE: 250 MG, GESTATIONAL WEEK: 10-11
     Route: 064
     Dates: start: 2011, end: 2011
  3. VIMPAT [Suspect]
     Indication: EPILEPSY
     Dosage: TOTAL DAILY DOSE: 200MG, GESTATIONAL WEEK: 11-12
     Route: 064
     Dates: start: 2011, end: 2011
  4. VIMPAT [Suspect]
     Indication: EPILEPSY
     Dosage: TOTAL DAILY DOSE: 150 MG, GESTATIONAL WEEK: 12-13
     Route: 064
     Dates: start: 2011, end: 2011
  5. VIMPAT [Suspect]
     Indication: EPILEPSY
     Dosage: TOTAL DAILY DOSE: 100 MG, GESTATIONAL WEEK: 13-14
     Route: 064
     Dates: start: 2011, end: 2011
  6. VIMPAT [Suspect]
     Indication: EPILEPSY
     Dosage: DOSE: 50 M, GESTATIONAL WEEK: 14-15
     Route: 064
     Dates: start: 2011, end: 2011
  7. VIMPAT [Suspect]
     Indication: EPILEPSY
     Route: 064
     Dates: start: 2011, end: 20111202
  8. LAMOTRIGINE [Suspect]
     Indication: EPILEPSY
     Dosage: TOTAL DAILY DOSE: 300 MG
     Route: 064
     Dates: start: 201103, end: 2011
  9. LAMOTRIGINE [Suspect]
     Indication: EPILEPSY
     Dosage: TOTAL DAILY DOSE: 225 MG, GESTATIONAL WEEK: 10-11
     Route: 064
     Dates: start: 2011, end: 2011
  10. LAMOTRIGINE [Suspect]
     Indication: EPILEPSY
     Dosage: TOTAL DAILY DOSE: 250MG, GESTATIONAL WEEK: 10-12
     Route: 064
     Dates: start: 2011, end: 2011
  11. LAMOTRIGINE [Suspect]
     Indication: EPILEPSY
     Dosage: TOTAL DAILY DOSE: 275MG, GESTATIONAL WEEK: 12-13
     Route: 064
     Dates: start: 2011, end: 2011
  12. LAMOTRIGINE [Suspect]
     Indication: EPILEPSY
     Dosage: TOTAL DAILY DOSE: 300MG, GESTATIONAL WEEK: 13-15
     Route: 064
     Dates: start: 2011, end: 2011
  13. LAMOTRIGINE [Suspect]
     Indication: EPILEPSY
     Route: 064
     Dates: start: 2011, end: 20111202
  14. ZEBINIX [Concomitant]
     Indication: EPILEPSY
     Dosage: TOTAL DAILY DOSE: 200MG, 0-4.5 GESTATIONAL WEEK
     Route: 064
     Dates: start: 201103, end: 20110323
  15. FOLIO FORTE [Concomitant]
     Indication: PROPHYLAXIS OF NEURAL TUBE DEFECT
     Dosage: 8.3-41 GASTATIONAL WEEK
     Route: 064
     Dates: start: 20110418, end: 20111202

REACTIONS (4)
  - Atrial septal defect [Recovered/Resolved]
  - Directional Doppler flow tests abnormal [Recovered/Resolved]
  - Small for dates baby [Unknown]
  - Foetal exposure during pregnancy [Recovered/Resolved]
